FAERS Safety Report 15276628 (Version 1)
Quarter: 2018Q3

REPORT INFORMATION
  Report Type: Spontaneous
  Country: US (occurrence: US)
  Receive Date: 20180814
  Receipt Date: 20180814
  Transmission Date: 20181010
  Serious: No
  Sender: FDA-Public Use
  Company Number: US-SUN PHARMACEUTICAL INDUSTRIES LTD-2017US-148321

PATIENT
  Sex: Female
  Weight: 61.22 kg

DRUGS (1)
  1. SUMATRIPTAN. [Suspect]
     Active Substance: SUMATRIPTAN
     Indication: MIGRAINE
     Dosage: ABOUT 1 EVERY 6 MONTHS
     Route: 065

REACTIONS (2)
  - Device defective [Unknown]
  - Expired product administered [Unknown]
